FAERS Safety Report 9989076 (Version 1)
Quarter: 2014Q1

REPORT INFORMATION
  Report Type: Spontaneous
  Country: US (occurrence: US)
  Receive Date: 20140310
  Receipt Date: 20140310
  Transmission Date: 20141002
  Serious: No
  Sender: FDA-Public Use
  Company Number: US-ABBVIE-13P-163-1128673-00

PATIENT
  Age: 41 Year
  Sex: Female
  Weight: 98.97 kg

DRUGS (7)
  1. HUMIRA [Suspect]
     Indication: CROHN^S DISEASE
     Dates: start: 20130329, end: 20130329
  2. HUMIRA [Suspect]
     Dates: start: 20130412, end: 20130412
  3. HUMIRA [Suspect]
     Dates: start: 20130426
  4. PRILOSEC [Concomitant]
     Indication: GASTROOESOPHAGEAL REFLUX DISEASE
  5. PROMETHAZINE [Concomitant]
     Indication: NAUSEA
  6. NORTRIPTYLINE [Concomitant]
     Indication: HEADACHE
  7. NORTRIPTYLINE [Concomitant]
     Indication: SLEEP DISORDER

REACTIONS (3)
  - Psoriasis [Not Recovered/Not Resolved]
  - Abdominal pain upper [Not Recovered/Not Resolved]
  - Diarrhoea [Not Recovered/Not Resolved]
